FAERS Safety Report 23414935 (Version 1)
Quarter: 2024Q1

REPORT INFORMATION
  Report Type: Spontaneous
  Country: US (occurrence: US)
  Receive Date: 20240118
  Receipt Date: 20240118
  Transmission Date: 20240410
  Serious: No
  Sender: FDA-Public Use
  Company Number: US-SANOFI-01904536

PATIENT
  Age: 38 Year
  Sex: Male

DRUGS (2)
  1. IMOVAX POLIO [Suspect]
     Active Substance: POLIOMYELITIS VACCINE
     Indication: Immunisation
     Dosage: .05 ML
     Route: 058
     Dates: start: 20240111
  2. TUBERSOL [Suspect]
     Active Substance: TUBERCULIN PURIFIED PROTEIN DERIVATIVE
     Indication: Skin test
     Dosage: UNK

REACTIONS (1)
  - Wrong product administered [Unknown]

NARRATIVE: CASE EVENT DATE: 20240111
